FAERS Safety Report 6716976-3 (Version None)
Quarter: 2010Q2

REPORT INFORMATION
  Report Type: 
  Country: None (occurrence: None)
  Receive Date: 20100506
  Receipt Date: 20100506
  Transmission Date: 20101027
  Serious: No
  Sender: FDA-Public Use
  Company Number: None

PATIENT
  Age: 32 Year
  Sex: Male
  Weight: 99.7913 kg

DRUGS (1)
  1. DOXYCYCLINE HYCLATE [Suspect]
     Indication: SKIN INFECTION
     Dosage: 100 MG 2 X A DAY ORAL
     Route: 048
     Dates: start: 20100330

REACTIONS (3)
  - ANXIETY [None]
  - DEPRESSION [None]
  - INSOMNIA [None]
